FAERS Safety Report 5656321-8 (Version None)
Quarter: 2008Q1

REPORT INFORMATION
  Report Type: 
  Country: None (occurrence: None)
  Receive Date: 20080309
  Receipt Date: 20071127
  Transmission Date: 20080703
  Serious: No
  Sender: FDA-Public Use
  Company Number: US-BAYER-200713932BCC

PATIENT
  Age: 57 Year
  Sex: Male
  Weight: 95 kg

DRUGS (8)
  1. ALEVE [Suspect]
     Indication: MUSCULOSKELETAL PAIN
     Route: 048
     Dates: start: 20071117, end: 20071121
  2. ASPIRIN [Suspect]
     Indication: ISCHAEMIC HEART DISEASE PROPHYLAXIS
     Route: 048
  3. INSULIN [Concomitant]
  4. PREVACID [Concomitant]
  5. TOPROL [Concomitant]
  6. LIPITOR [Concomitant]
  7. LINOPRIL [Concomitant]
  8. FLOMAX [Concomitant]

REACTIONS (2)
  - DIARRHOEA [None]
  - MALABSORPTION [None]
